FAERS Safety Report 4830056-3 (Version None)
Quarter: 2005Q4

REPORT INFORMATION
  Report Type: 
  Country: None (occurrence: None)
  Receive Date: 20051115
  Receipt Date: 20051115
  Transmission Date: 20060501
  Serious: Yes (Death)
  Sender: FDA-Public Use
  Company Number: None

PATIENT
  Age: 75 Year
  Sex: Male
  Weight: 70.7611 kg

DRUGS (2)
  1. CYTARABINE [Suspect]
     Indication: ACUTE MYELOID LEUKAEMIA
     Dosage: 180 MG CONT IV
     Route: 042
     Dates: start: 20051010, end: 20051016
  2. CLOFARABINE [Suspect]
     Indication: ACUTE MYELOID LEUKAEMIA
     Dosage: 40 MG QD IV
     Route: 042
     Dates: start: 20051011, end: 20051015

REACTIONS (4)
  - ARRHYTHMIA [None]
  - BRADYCARDIA [None]
  - HYPOTENSION [None]
  - RESPIRATORY DISTRESS [None]
